FAERS Safety Report 5847360-2 (Version None)
Quarter: 2008Q3

REPORT INFORMATION
  Report Type: 
  Country: None (occurrence: None)
  Receive Date: 20080813
  Receipt Date: 20080805
  Transmission Date: 20090109
  Serious: Yes (Hospitalization)
  Sender: FDA-Public Use
  Company Number: DSA_31828_2008

PATIENT
  Sex: Female

DRUGS (4)
  1. LORAZEPAM [Suspect]
     Dosage: (30 DF 1X 30 TABLETS - NOT THE PRESCRIBED AMOUNT ORAL)
     Route: 048
     Dates: start: 20080506, end: 20080506
  2. DONEURIN (DONEURIN - DOXEPIN HYDROCHLORIDE) 25 MG (NOT SPECIFIED) [Suspect]
     Dosage: (500 MG 1X NOT THE PRESCRIBED AMOUNT ORAL)
     Route: 048
     Dates: start: 20080506, end: 20080506
  3. CLOZAPINE [Suspect]
     Dosage: (NOT THE PRESCRIBED AMOUNT ORAL)
     Route: 048
     Dates: start: 20080506, end: 20080506
  4. ETHANOL (RED WINE) [Suspect]
     Dosage: (1/2 BOTTLE OF RED WINE ORAL)
     Route: 048
     Dates: start: 20080506, end: 20080506

REACTIONS (6)
  - BLOOD CREATINE PHOSPHOKINASE INCREASED [None]
  - DEPRESSED LEVEL OF CONSCIOUSNESS [None]
  - HALLUCINATION [None]
  - MULTIPLE DRUG OVERDOSE INTENTIONAL [None]
  - SUICIDE ATTEMPT [None]
  - TACHYCARDIA [None]
